FAERS Safety Report 7327503-4 (Version None)
Quarter: 2011Q1

REPORT INFORMATION
  Report Type: 
  Country: None (occurrence: None)
  Receive Date: 20110303
  Receipt Date: 20110218
  Transmission Date: 20110831
  Serious: No
  Sender: FDA-Public Use
  Company Number: US-BIOGENIDEC-2011BI005935

PATIENT
  Age: 56 Year
  Sex: Female

DRUGS (3)
  1. TYSABRI [Suspect]
     Route: 042
     Dates: start: 20061109, end: 20100309
  2. AVONEX [Concomitant]
     Indication: MULTIPLE SCLEROSIS
     Route: 030
     Dates: start: 20100527
  3. TYSABRI [Suspect]
     Indication: MULTIPLE SCLEROSIS
     Route: 042
     Dates: start: 20101018

REACTIONS (8)
  - DIARRHOEA [None]
  - GASTROENTERITIS VIRAL [None]
  - COUGH [None]
  - ASTHENIA [None]
  - EXERCISE TOLERANCE DECREASED [None]
  - MOTOR DYSFUNCTION [None]
  - NASOPHARYNGITIS [None]
  - SINUSITIS [None]
